FAERS Safety Report 18442321 (Version 2)
Quarter: 2020Q4

REPORT INFORMATION
  Report Type: Report from Study
  Country: US (occurrence: US)
  Receive Date: 20201029
  Receipt Date: 20201210
  Transmission Date: 20210114
  Serious: No
  Sender: FDA-Public Use
  Company Number: US-BRISTOL-MYERS SQUIBB COMPANY-BMS-2020-088836

PATIENT
  Sex: Female
  Weight: 66 kg

DRUGS (4)
  1. NIVOLUMAB [Suspect]
     Active Substance: NIVOLUMAB
     Indication: BREAST CANCER
     Dosage: 360 MILLIGRAM, Q3WK
     Route: 065
     Dates: start: 20190925, end: 20201007
  2. ROMIDEPSIN. [Suspect]
     Active Substance: ROMIDEPSIN
     Indication: BREAST CANCER
     Dosage: 12 MILLIGRAM/SQ. METER, Q3WK (D2 D9)
     Route: 042
     Dates: start: 20190926, end: 20201014
  3. CISPLATIN. [Suspect]
     Active Substance: CISPLATIN
     Indication: BREAST CANCER
     Dosage: 75 MILLIGRAM/SQ. METER, Q3WK (D1)
     Route: 042
     Dates: start: 20190925, end: 20191218
  4. PROCHLORPERAZINE MALEATE. [Suspect]
     Active Substance: PROCHLORPERAZINE MALEATE
     Indication: VOMITING
     Dosage: 10 MILLIGRAM
     Route: 048

REACTIONS (1)
  - No adverse event [Unknown]
